FAERS Safety Report 16342973 (Version 1)
Quarter: 2019Q2

REPORT INFORMATION
  Report Type: Spontaneous
  Country: US (occurrence: US)
  Receive Date: 20190522
  Receipt Date: 20190522
  Transmission Date: 20190711
  Serious: Yes (Hospitalization, Other)
  Sender: FDA-Public Use
  Company Number: US-PFIZER INC-2019211986

PATIENT
  Sex: Female
  Weight: 73.94 kg

DRUGS (6)
  1. PREMARIN [Suspect]
     Active Substance: ESTROGENS, CONJUGATED
     Indication: MENOPAUSE
  2. GABAPENTIN. [Concomitant]
     Active Substance: GABAPENTIN
     Indication: BLADDER PAIN
  3. LEVOTHYROXINE. [Concomitant]
     Active Substance: LEVOTHYROXINE
     Indication: HYPOTHYROIDISM
     Dosage: 100 UG, 1X/DAY
     Dates: start: 2007
  4. GABAPENTIN. [Concomitant]
     Active Substance: GABAPENTIN
     Indication: NEUROPATHY PERIPHERAL
  5. GABAPENTIN. [Concomitant]
     Active Substance: GABAPENTIN
     Indication: NERVE INJURY
     Dosage: 600 MG, 3X/DAY
     Route: 048
     Dates: start: 2018
  6. PREMARIN [Suspect]
     Active Substance: ESTROGENS, CONJUGATED
     Indication: ATROPHIC VULVOVAGINITIS
     Dosage: 0.625 MG, ONCE A DAY
     Route: 048
     Dates: start: 2013

REACTIONS (5)
  - Escherichia urinary tract infection [Unknown]
  - Intentional product misuse [Unknown]
  - Sepsis [Unknown]
  - Urinary tract infection bacterial [Unknown]
  - Urinary tract infection staphylococcal [Unknown]
